FAERS Safety Report 8437244-8 (Version None)
Quarter: 2012Q2

REPORT INFORMATION
  Report Type: 
  Country: None (occurrence: None)
  Receive Date: 20120614
  Receipt Date: 20120229
  Transmission Date: 20120825
  Serious: No
  Sender: FDA-Public Use
  Company Number: US-AMGEN-USASP2011022011

PATIENT
  Age: 73 Year
  Sex: Female

DRUGS (7)
  1. WELLBUTRIN [Concomitant]
  2. PROLIA [Suspect]
     Dosage: 60 MG, Q6MO
     Dates: start: 20110425
  3. VENLAFAXINE HCL [Concomitant]
     Dosage: 150 MG, UNK
     Dates: start: 20120222
  4. LEVOTHYROXINE SODIUM [Concomitant]
     Dosage: 50 MG, UNK
  5. SIMVASTATIN [Concomitant]
     Dosage: 20 MG, UNK
  6. CLONAZEPAM [Concomitant]
     Dosage: 1 MG, UNK
     Dates: start: 20111108
  7. PROLIA [Suspect]
     Indication: OSTEOPOROSIS POSTMENOPAUSAL
     Dosage: 60 MG, UNK
     Route: 058
     Dates: start: 20101203

REACTIONS (1)
  - INAPPROPRIATE SCHEDULE OF DRUG ADMINISTRATION [None]
